FAERS Safety Report 7434896-6 (Version None)
Quarter: 2011Q2

REPORT INFORMATION
  Report Type: 
  Country: None (occurrence: None)
  Receive Date: 20110425
  Receipt Date: 20110419
  Transmission Date: 20111010
  Serious: Yes (Death, Life-Threatening, Hospitalization)
  Sender: FDA-Public Use
  Company Number: CA-ROCHE-763039

PATIENT
  Sex: Female

DRUGS (15)
  1. ATIVAN [Suspect]
     Dosage: OVERDOSE
     Route: 065
  2. PROPAFENONE [Suspect]
     Dosage: OVERDOSE
     Route: 065
  3. PROPAFENONE [Suspect]
     Route: 065
     Dates: start: 20100301
  4. VENLAFAXINE HCL [Concomitant]
  5. APIXABAN [Suspect]
     Indication: THROMBOSIS PROPHYLAXIS
     Route: 048
     Dates: start: 20090904
  6. GLICLAZIDE [Concomitant]
  7. CLONAZEPAM [Suspect]
     Dosage: OVERDOSE
     Route: 065
  8. ATIVAN [Suspect]
     Dosage: AS NECESSARY
     Route: 065
  9. CIPRALEX [Suspect]
     Indication: DEPRESSION
     Route: 065
  10. METFORMIN [Concomitant]
  11. WARFARIN SODIUM [Suspect]
     Indication: THROMBOSIS PROPHYLAXIS
     Route: 048
     Dates: start: 20090904
  12. METOPROLOL [Suspect]
     Dosage: OVERDOSE
     Route: 065
  13. EZETIMIBE [Concomitant]
  14. CLONAZEPAM [Suspect]
     Route: 065
  15. METOPROLOL [Suspect]
     Route: 065

REACTIONS (4)
  - INTENTIONAL OVERDOSE [None]
  - HYPOTENSION [None]
  - CARDIAC ARREST [None]
  - HYPOXIA [None]
